FAERS Safety Report 8562690 (Version 2)
Quarter: 2013Q1

REPORT INFORMATION
  Report Type: Spontaneous
  Country: CH (occurrence: CH)
  Receive Date: 20120515
  Receipt Date: 20130304
  Transmission Date: 20140127
  Serious: Yes (Life-Threatening, Hospitalization)
  Sender: FDA-Public Use
  Company Number: CH-ASTRAZENECA-2012SE30117

PATIENT
  Age: 46 Year
  Sex: Female

DRUGS (18)
  1. NEXIUM [Suspect]
     Indication: GASTROOESOPHAGEAL REFLUX DISEASE
     Route: 048
     Dates: start: 20120422
  2. CIPRALEX [Interacting]
     Indication: DEPRESSION
     Route: 048
     Dates: start: 2007, end: 20120429
  3. PREZISTA [Interacting]
     Indication: HIV TEST
     Route: 048
     Dates: start: 20120425
  4. NORVIR [Interacting]
     Indication: HIV TEST
     Route: 048
     Dates: start: 20120425
  5. TRUVADA [Concomitant]
     Dosage: 200/245 MG DAILY
     Route: 048
  6. KAPANOL [Concomitant]
     Route: 048
  7. WELLVONE [Concomitant]
     Route: 048
  8. NOROXIN [Concomitant]
     Route: 048
  9. ANXIOLIT [Concomitant]
     Route: 048
  10. TORASEMID [Concomitant]
     Route: 048
  11. IMPORTAL [Concomitant]
     Route: 048
  12. SERETIDE [Concomitant]
     Route: 055
  13. NASONEX [Concomitant]
     Route: 045
  14. ROHYPNOL [Concomitant]
     Route: 048
  15. INTELENCE [Concomitant]
     Dates: end: 20120420
  16. ISENTRESS [Concomitant]
     Dates: end: 20120420
  17. 3 TC [Concomitant]
     Dates: end: 20120420
  18. ALDACTONE [Concomitant]

REACTIONS (7)
  - Drug interaction [Unknown]
  - Serotonin syndrome [Recovered/Resolved]
  - Tremor [Recovered/Resolved]
  - Myoclonus [Recovered/Resolved]
  - Mydriasis [Recovered/Resolved]
  - Hyperhidrosis [Recovered/Resolved]
  - Confusional state [Recovered/Resolved]
